FAERS Safety Report 19279986 (Version 1)
Quarter: 2021Q2

REPORT INFORMATION
  Report Type: Spontaneous
  Country: US (occurrence: US)
  Receive Date: 20210520
  Receipt Date: 20210520
  Transmission Date: 20210717
  Serious: No
  Sender: FDA-Public Use
  Company Number: US-PFIZER INC-2021221527

PATIENT
  Age: 81 Year
  Sex: Male
  Weight: 97.51 kg

DRUGS (2)
  1. BENAZEPRIL [Concomitant]
     Active Substance: BENAZEPRIL HYDROCHLORIDE
     Dosage: 20 MG
  2. NORVASC [Suspect]
     Active Substance: AMLODIPINE BESYLATE
     Dosage: 5 MG
     Dates: start: 20200116

REACTIONS (13)
  - Fatigue [Unknown]
  - Eye swelling [Unknown]
  - Somnolence [Unknown]
  - Tinnitus [Unknown]
  - Blood pressure increased [Recovered/Resolved]
  - Bowel movement irregularity [Unknown]
  - Arthralgia [Unknown]
  - Pelvic pain [Unknown]
  - Malaise [Unknown]
  - Dysuria [Unknown]
  - Pruritus [Unknown]
  - Abdominal pain [Unknown]
  - Contraindicated product administered [Unknown]

NARRATIVE: CASE EVENT DATE: 20200119
